FAERS Safety Report 7041181-3 (Version None)
Quarter: 2010Q4

REPORT INFORMATION
  Report Type: 
  Country: None (occurrence: None)
  Receive Date: 20101013
  Receipt Date: 20101008
  Transmission Date: 20110411
  Serious: Yes (Other)
  Sender: FDA-Public Use
  Company Number: US-ALEXION-A201001164

PATIENT
  Sex: Female
  Weight: 92.517 kg

DRUGS (9)
  1. SOLIRIS [Suspect]
     Indication: PAROXYSMAL NOCTURNAL HAEMOGLOBINURIA
     Dosage: 600 MG, QW
     Route: 042
     Dates: start: 20091202, end: 20091223
  2. SOLIRIS [Suspect]
     Dosage: 900 MG, Q2W
     Route: 042
     Dates: start: 20091230, end: 20100903
  3. TYLENOL (CAPLET) [Concomitant]
     Indication: PREMEDICATION
     Dosage: 1000 MG, UNK
     Route: 048
     Dates: start: 20091202
  4. BENTYL [Concomitant]
     Dosage: 20 MG, PRN
     Route: 048
     Dates: start: 20091015
  5. METOPROLOL [Concomitant]
     Dosage: 25 MG, BID
     Route: 048
     Dates: start: 20091015
  6. CELEBREX [Concomitant]
     Indication: PAIN
     Dosage: PRN
     Dates: start: 20100809
  7. FENTANYL [Concomitant]
     Indication: ANAESTHESIA
     Dosage: 100 UG, SINGLE
     Route: 042
     Dates: start: 20100926, end: 20100926
  8. MIDAZOLAM HCL [Concomitant]
     Indication: ANAESTHESIA
     Dosage: 4 MG, SINGLE
     Route: 042
     Dates: start: 20100926, end: 20100926
  9. BENZOCAINE [Concomitant]
     Route: 061

REACTIONS (5)
  - COLON CANCER RECURRENT [None]
  - DIZZINESS [None]
  - HEADACHE [None]
  - HELICOBACTER GASTRITIS [None]
  - NAUSEA [None]
